FAERS Safety Report 9345753 (Version 2)
Quarter: 2013Q2

REPORT INFORMATION
  Report Type: Spontaneous
  Country: US (occurrence: US)
  Receive Date: 20130613
  Receipt Date: 20130625
  Transmission Date: 20140414
  Serious: No
  Sender: FDA-Public Use
  Company Number: US-PFIZER INC-2013174689

PATIENT
  Age: 20 Year
  Sex: Male
  Weight: 74.83 kg

DRUGS (1)
  1. XELJANZ [Suspect]
     Indication: SCHIZOPHRENIA
     Dosage: UNK

REACTIONS (1)
  - Off label use [Unknown]
